FAERS Safety Report 5405392-2 (Version None)
Quarter: 2007Q3

REPORT INFORMATION
  Report Type: 
  Country: None (occurrence: None)
  Receive Date: 20070803
  Receipt Date: 20070420
  Transmission Date: 20080115
  Serious: Yes (Other)
  Sender: FDA-Public Use
  Company Number: FR-PFIZER INC-2007019359

PATIENT
  Age: 55 Year
  Sex: Male

DRUGS (6)
  1. INSPRA [Suspect]
     Indication: CARDIOMYOPATHY
  2. TAHOR [Concomitant]
  3. KREDEX [Concomitant]
     Dosage: DAILY DOSE:25MG-FREQ:DAILY
  4. MAGNESIUM SULFATE [Concomitant]
     Route: 048
  5. KARDEGIC [Concomitant]
  6. PERINDOPRIL ERBUMINE [Concomitant]

REACTIONS (1)
  - PLATELET COUNT DECREASED [None]
